FAERS Safety Report 4985899-2 (Version None)
Quarter: 2006Q2

REPORT INFORMATION
  Report Type: 
  Country: None (occurrence: None)
  Receive Date: 20060421
  Receipt Date: 20060412
  Transmission Date: 20061013
  Serious: Yes (Hospitalization)
  Sender: FDA-Public Use
  Company Number: 200610531GDS

PATIENT
  Age: 44 Year
  Sex: Female
  Weight: 56.6996 kg

DRUGS (4)
  1. CIPROFLOXACIN HCL [Suspect]
     Indication: INFECTION
     Dosage: 1000 MG, TOTAL DAILY, ORAL
     Route: 048
     Dates: start: 20010112, end: 20010121
  2. AMITRIPTYLINE HCL [Concomitant]
  3. CELEBREX [Concomitant]
  4. IBUPROFEN [Concomitant]

REACTIONS (8)
  - BLOOD CREATINE PHOSPHOKINASE INCREASED [None]
  - DIFFICULTY IN WALKING [None]
  - ERYTHEMA [None]
  - FATIGUE [None]
  - HYPERAESTHESIA [None]
  - MYALGIA [None]
  - PAIN IN EXTREMITY [None]
  - SKIN WARM [None]
